FAERS Safety Report 18673001 (Version 3)
Quarter: 2021Q1

REPORT INFORMATION
  Report Type: Report from Study
  Country: US (occurrence: US)
  Receive Date: 20201229
  Receipt Date: 20210301
  Transmission Date: 20210419
  Serious: Yes (Death, Hospitalization)
  Sender: FDA-Public Use
  Company Number: US-INSMED, INC.-US-INS-20-02401

PATIENT
  Sex: Female

DRUGS (2)
  1. ARIKAYCE [Suspect]
     Active Substance: AMIKACIN
     Dosage: 590 MILLIGRAM, QD
     Route: 055
  2. ARIKAYCE [Suspect]
     Active Substance: AMIKACIN
     Indication: PRODUCT USED FOR UNKNOWN INDICATION
     Dosage: 590 MILLIGRAM, TIW
     Route: 055
     Dates: start: 20190123

REACTIONS (5)
  - Hospitalisation [Unknown]
  - Off label use [Unknown]
  - Illness [Unknown]
  - Death [Fatal]
  - Therapy interrupted [Unknown]

NARRATIVE: CASE EVENT DATE: 2021
